FAERS Safety Report 7914019-7 (Version None)
Quarter: 2011Q4

REPORT INFORMATION
  Report Type: 
  Country: None (occurrence: None)
  Receive Date: 20111110
  Receipt Date: 20111101
  Transmission Date: 20120403
  Serious: Yes (Death, Hospitalization)
  Sender: FDA-Public Use
  Company Number: IMP_05448_2011

PATIENT
  Age: 21 Year
  Sex: Female

DRUGS (1)
  1. METFORMIN HCL [Suspect]
     Indication: PRODUCT USED FOR UNKNOWN INDICATION
     Dosage: 100 G, DF ORAL
     Route: 048

REACTIONS (13)
  - LOSS OF CONSCIOUSNESS [None]
  - HAEMODIALYSIS [None]
  - VOMITING [None]
  - METABOLIC ACIDOSIS [None]
  - HYPOGLYCAEMIA [None]
  - TOXICITY TO VARIOUS AGENTS [None]
  - HYPOVOLAEMIC SHOCK [None]
  - GENERAL PHYSICAL HEALTH DETERIORATION [None]
  - BRADYARRHYTHMIA [None]
  - INCORRECT DOSE ADMINISTERED [None]
  - CONVULSION [None]
  - HEART RATE INCREASED [None]
  - NAUSEA [None]
